FAERS Safety Report 20615696 (Version 1)
Quarter: 2022Q1

REPORT INFORMATION
  Report Type: Report from Study
  Country: FI (occurrence: FI)
  Receive Date: 20220321
  Receipt Date: 20220321
  Transmission Date: 20220423
  Serious: Yes (Hospitalization, Other)
  Sender: FDA-Public Use
  Company Number: FI-MYLANLABS-2022M1020350

PATIENT
  Age: 35 Year
  Sex: Male

DRUGS (1)
  1. CLOZAPINE [Suspect]
     Active Substance: CLOZAPINE
     Indication: Product used for unknown indication
     Dosage: UNK (START DATE: 2022)
     Dates: end: 202203

REACTIONS (4)
  - Condition aggravated [Unknown]
  - COVID-19 [Unknown]
  - Myocarditis [Unknown]
  - Pyrexia [Unknown]

NARRATIVE: CASE EVENT DATE: 20220301
